FAERS Safety Report 10066671 (Version 1)
Quarter: 2014Q2

REPORT INFORMATION
  Report Type: Report from Study
  Country: BR (occurrence: BR)
  Receive Date: 20140408
  Receipt Date: 20140408
  Transmission Date: 20141212
  Serious: Yes (Other)
  Sender: FDA-Public Use
  Company Number: PHHY2014BR041394

PATIENT
  Sex: Female

DRUGS (2)
  1. GALVUS [Suspect]
  2. DIOVAN [Suspect]

REACTIONS (1)
  - Renal disorder [Unknown]
